FAERS Safety Report 12545104 (Version 1)
Quarter: 2016Q3

REPORT INFORMATION
  Report Type: Spontaneous
  Country: BR (occurrence: BR)
  Receive Date: 20160711
  Receipt Date: 20160711
  Transmission Date: 20161109
  Serious: Yes (Other)
  Sender: FDA-Public Use
  Company Number: BR-PFIZER INC-2016274282

PATIENT
  Age: 3 Year
  Sex: Male
  Weight: 30 kg

DRUGS (5)
  1. MAXCEF [Concomitant]
     Dosage: 3750 MG, DAILY
  2. METHYLPREDNISOLONE SODIUM SUCCINATE. [Suspect]
     Active Substance: METHYLPREDNISOLONE SODIUM SUCCINATE
     Dosage: 25 MG, 4X/DAY
     Route: 042
     Dates: start: 20160308, end: 20160308
  3. ACICLOVIR [Concomitant]
     Active Substance: ACYCLOVIR
     Dosage: 1290 MG, DAILY
  4. CICLOSPORIN [Concomitant]
     Active Substance: CYCLOSPORINE
     Dosage: 60 MG, DAILY
  5. AEROLIN [Concomitant]
     Active Substance: ALBUTEROL
     Dosage: 3200 UG (100 UG/DOSE), DAILY

REACTIONS (1)
  - Agitation [Recovered/Resolved]

NARRATIVE: CASE EVENT DATE: 20160308
